FAERS Safety Report 14774027 (Version 1)
Quarter: 2018Q2

REPORT INFORMATION
  Report Type: Spontaneous
  Country: GB (occurrence: GB)
  Receive Date: 20180418
  Receipt Date: 20180418
  Transmission Date: 20180711
  Serious: Yes (Other)
  Sender: FDA-Public Use
  Company Number: GB-TEVA-2018-GB-883443

PATIENT
  Age: 30 Year
  Sex: Male

DRUGS (1)
  1. HALOPERIDOL. [Suspect]
     Active Substance: HALOPERIDOL
     Route: 048

REACTIONS (4)
  - Panic reaction [Unknown]
  - Mouth swelling [Unknown]
  - Dyspnoea [Unknown]
  - Joint stiffness [Unknown]

NARRATIVE: CASE EVENT DATE: 20161119
